FAERS Safety Report 7728191-5 (Version None)
Quarter: 2011Q3

REPORT INFORMATION
  Report Type: 
  Country: None (occurrence: None)
  Receive Date: 20110905
  Receipt Date: 20110825
  Transmission Date: 20111222
  Serious: Yes (Hospitalization)
  Sender: FDA-Public Use
  Company Number: PHHO2011BE14677

PATIENT
  Sex: Male
  Weight: 108 kg

DRUGS (7)
  1. MYFORTIC [Suspect]
     Indication: RENAL TRANSPLANT
     Dosage: 1440 MG, UNK
     Route: 048
     Dates: start: 20100323, end: 20100527
  2. MEDROL [Suspect]
     Indication: RENAL TRANSPLANT
     Dosage: 8 MG, UNK
     Route: 048
     Dates: start: 20100422, end: 20100428
  3. MYFORTIC [Suspect]
     Dosage: 720 MG, UNK
     Route: 048
     Dates: start: 20100602
  4. NO TREATMENT RECEIVED [Suspect]
     Indication: RENAL TRANSPLANT
  5. MEDROL [Suspect]
     Dosage: 4 MG, UNK
     Route: 048
     Dates: start: 20100510
  6. NEORAL [Suspect]
     Dosage: 175 MG, UNK
     Route: 048
     Dates: start: 20100628, end: 20100901
  7. NEORAL [Suspect]
     Indication: RENAL TRANSPLANT
     Dosage: 225 MG, UNK
     Route: 048
     Dates: start: 20100422, end: 20100428

REACTIONS (4)
  - CYTOMEGALOVIRUS INFECTION [None]
  - RENAL FAILURE [None]
  - KIDNEY TRANSPLANT REJECTION [None]
  - ESCHERICHIA URINARY TRACT INFECTION [None]
